FAERS Safety Report 6760205-1 (Version None)
Quarter: 2010Q2

REPORT INFORMATION
  Report Type: 
  Country: None (occurrence: None)
  Receive Date: 20100608
  Receipt Date: 20000328
  Transmission Date: 20101027
  Serious: No
  Sender: FDA-Public Use
  Company Number: 1999SUS1252

PATIENT
  Age: 32 Year
  Sex: Female
  Weight: 79 kg

DRUGS (6)
  1. SUSTIVA [Suspect]
     Indication: HIV INFECTION
     Dosage: UNK UNK
     Route: 048
     Dates: end: 19990309
  2. COMBIVIR [Concomitant]
     Dosage: 1 TAB AES#DOSE_FREQUENCY: BID
     Route: 048
  3. CRIXIVAN [Concomitant]
     Dosage: 800 MG AES#DOSE_FREQUENCY: BID
     Route: 048
  4. NEVIRAPINE [Concomitant]
     Dosage: 200 MG AES#DOSE_FREQUENCY: BID
     Route: 048
  5. PROVENTIL [Concomitant]
     Route: 050
  6. ATROVENT [Concomitant]
     Route: 050

REACTIONS (3)
  - LIVE BIRTH [None]
  - PNEUMONIA [None]
  - PREGNANCY [None]
